FAERS Safety Report 9680183 (Version 2)
Quarter: 2014Q1

REPORT INFORMATION
  Report Type: Spontaneous
  Country: US (occurrence: US)
  Receive Date: 20131111
  Receipt Date: 20140101
  Transmission Date: 20141002
  Serious: No
  Sender: FDA-Public Use
  Company Number: US-BIOGENIDEC-2013BI105138

PATIENT
  Age: 64 Year
  Sex: Male

DRUGS (8)
  1. TYSABRI [Suspect]
     Indication: MULTIPLE SCLEROSIS
     Route: 042
     Dates: start: 20120202, end: 20120413
  2. METFORMIN HCL [Concomitant]
  3. PROVIGIL [Concomitant]
     Route: 048
  4. PRIMIDONE [Concomitant]
  5. TIZANIDINE HCL [Concomitant]
  6. ALLEGRA-D [Concomitant]
  7. ASPIRIN [Concomitant]
  8. VITAMIN D [Concomitant]

REACTIONS (2)
  - Exfoliative rash [Recovered/Resolved]
  - Hypersensitivity [Recovered/Resolved]
